FAERS Safety Report 6017394-6 (Version None)
Quarter: 2008Q4

REPORT INFORMATION
  Report Type: 
  Country: None (occurrence: None)
  Receive Date: 20081223
  Receipt Date: 20081212
  Transmission Date: 20090506
  Serious: Yes (Hospitalization)
  Sender: FDA-Public Use
  Company Number: PHHY2008CA31096

PATIENT
  Age: 67 Year
  Sex: Female

DRUGS (8)
  1. DIOVAN HCT [Suspect]
     Dosage: 80/12.5 MG
     Route: 048
  2. DIOVAN HCT [Suspect]
     Dosage: 160/12.5 MG
     Route: 048
  3. DIOVAN [Suspect]
     Dosage: 160 MG
  4. DIOVAN [Suspect]
     Dosage: 160 MG
     Dates: start: 20081130
  5. MONOCOR [Concomitant]
     Dosage: UNK
     Dates: start: 20081130
  6. RIVASA [Concomitant]
     Dosage: UNK
  7. TIAZAC [Concomitant]
  8. EZETROL [Concomitant]

REACTIONS (3)
  - DRUG INEFFECTIVE [None]
  - HYPERTENSION [None]
  - PANCREATITIS [None]
